FAERS Safety Report 12966687 (Version 1)
Quarter: 2016Q4

REPORT INFORMATION
  Report Type: Spontaneous
  Country: FR (occurrence: FR)
  Receive Date: 20161122
  Receipt Date: 20161122
  Transmission Date: 20170207
  Serious: Yes (Hospitalization, Disabling)
  Sender: FDA-Public Use
  Company Number: FR-ROCHE-1858229

PATIENT
  Age: 65 Year
  Sex: Female

DRUGS (7)
  1. SOLUPRED (FRANCE) [Concomitant]
     Active Substance: PREDNISOLONE
  2. INNOHEP [Concomitant]
     Active Substance: TINZAPARIN SODIUM
  3. AVASTIN [Suspect]
     Active Substance: BEVACIZUMAB
     Indication: BREAST CANCER
     Route: 042
     Dates: start: 201409, end: 201601
  4. PACLITAXEL HOSPIRA [Suspect]
     Active Substance: PACLITAXEL
     Indication: BREAST CANCER
     Route: 042
     Dates: start: 201409, end: 201601
  5. XGEVA [Suspect]
     Active Substance: DENOSUMAB
     Indication: BREAST CANCER
     Route: 042
     Dates: start: 201409, end: 201601
  6. EFFERALGAN [Concomitant]
     Active Substance: ACETAMINOPHEN
  7. LERCAN [Concomitant]
     Active Substance: LERCANIDIPINE

REACTIONS (1)
  - Sudden hearing loss [Not Recovered/Not Resolved]

NARRATIVE: CASE EVENT DATE: 201512
